FAERS Safety Report 20030529 (Version 1)
Quarter: 2021Q4

REPORT INFORMATION
  Report Type: Spontaneous
  Country: US (occurrence: US)
  Receive Date: 20211103
  Receipt Date: 20211103
  Transmission Date: 20220303
  Serious: Yes (Hospitalization)
  Sender: FDA-Public Use
  Company Number: US-HISAMITSU-2021-US-022959

PATIENT
  Age: 55 Year
  Sex: Male
  Weight: 104.33 kg

DRUGS (16)
  1. SALONPAS LIDOCAINE PLUS [Suspect]
     Active Substance: BENZYL ALCOHOL\LIDOCAINE HYDROCHLORIDE
     Indication: Analgesic therapy
     Dosage: APPLY EVERY OTHER DAY AT LUNCH TO SHOULDERS, NECK AND SOME OF BACK, ALTERNATING WITH THE SPRAY
     Route: 061
     Dates: start: 202103, end: 20211014
  2. ARGININE [Concomitant]
     Active Substance: ARGININE
  3. LEVOCARNITINE [Concomitant]
     Active Substance: LEVOCARNITINE
  4. COENZYME Q10 [Concomitant]
     Active Substance: DIETARY SUPPLEMENT\UBIDECARENONE
  5. VITAMIN B [Concomitant]
     Active Substance: VITAMIN B
  6. VITAMIN C [Concomitant]
     Active Substance: ASCORBIC ACID
  7. VITAMIN D [Concomitant]
     Active Substance: VITAMIN D NOS
  8. ZINC [Concomitant]
     Active Substance: ZINC
  9. SALONPAS PAIN RELIEVING [Suspect]
     Active Substance: CAMPHOR (SYNTHETIC)\MENTHOL\METHYL SALICYLATE
     Indication: Analgesic therapy
     Dosage: APPLY EVERY OTHER DAY AT LUNCH TO SHOULDERS, NECK AND SOME OF BACK, ALTERNATING WITH THE ROLL ON
     Route: 061
     Dates: start: 202103, end: 20211018
  10. UNSPECIFIED INGREDIENT [Concomitant]
     Active Substance: UNSPECIFIED INGREDIENT
     Dosage: USED AS NEEDED
  11. CLONIDINE [Concomitant]
     Active Substance: CLONIDINE
  12. LISINOPRIL [Concomitant]
     Active Substance: LISINOPRIL
  13. AMLODIPINE [Concomitant]
     Active Substance: AMLODIPINE BESYLATE
  14. HYDROCHLOROTHIAZIDE [Concomitant]
     Active Substance: HYDROCHLOROTHIAZIDE
  15. BUSPIRONE [Concomitant]
     Active Substance: BUSPIRONE HYDROCHLORIDE
  16. CREATINE [Concomitant]
     Active Substance: CREATINE

REACTIONS (13)
  - Pneumonia [Unknown]
  - Pain [Recovering/Resolving]
  - Abdominal pain [Unknown]
  - Dyspnoea [Recovering/Resolving]
  - Dizziness [Recovered/Resolved]
  - Blood pressure increased [Recovering/Resolving]
  - Heart rate increased [Unknown]
  - Anxiety [Recovering/Resolving]
  - Dizziness [Recovering/Resolving]
  - Application site pain [Recovered/Resolved]
  - Pyrexia [Unknown]
  - Palpitations [Recovered/Resolved]
  - Laboratory test abnormal [Unknown]

NARRATIVE: CASE EVENT DATE: 20210921
